FAERS Safety Report 5309070-X (Version None)
Quarter: 2007Q2

REPORT INFORMATION
  Report Type: 
  Country: None (occurrence: None)
  Receive Date: 20070420
  Receipt Date: 20070405
  Transmission Date: 20071010
  Serious: Yes (Hospitalization, Other)
  Sender: FDA-Public Use
  Company Number: 155148ISR

PATIENT
  Age: 56 Year
  Sex: Female

DRUGS (3)
  1. DIAZEPAM [Suspect]
     Dosage: 40 MG (10 MG, 4 IN 1 D)
  2. HALOPERIDOL [Suspect]
     Dosage: 1.5 MG, AS REQUIRED
  3. PROCYCLIDINE HYDROCHLORIDE 2MG TAB [Suspect]
     Dosage: 15 MG  (5 MG. 3 IN  1 D)

REACTIONS (5)
  - DYSPHAGIA [None]
  - PARKINSONISM [None]
  - PRODUCTIVE COUGH [None]
  - RALES [None]
  - WEIGHT DECREASED [None]
